FAERS Safety Report 8377774-0 (Version None)
Quarter: 2012Q2

REPORT INFORMATION
  Report Type: 
  Country: None (occurrence: None)
  Receive Date: 20120522
  Receipt Date: 20120507
  Transmission Date: 20120825
  Serious: No
  Sender: FDA-Public Use
  Company Number: US-ENDO PHARMACEUTICALS INC.-SPLN20120046

PATIENT
  Sex: Female
  Weight: 44.2 kg

DRUGS (2)
  1. SUPPRELIN LA [Suspect]
     Indication: PRECOCIOUS PUBERTY
     Route: 058
     Dates: start: 20070101
  2. DITROPAN [Concomitant]
     Indication: BLADDER SPASM
     Dosage: UNKNOWN
     Route: 065

REACTIONS (14)
  - VOMITING [None]
  - MOOD SWINGS [None]
  - ENURESIS [None]
  - DRUG EFFECT DECREASED [None]
  - GASTRIC DISORDER [None]
  - ABDOMINAL PAIN [None]
  - LOCAL SWELLING [None]
  - CONSTIPATION [None]
  - HEADACHE [None]
  - AFFECT LABILITY [None]
  - CHEST PAIN [None]
  - PERSONALITY CHANGE [None]
  - HYPERTENSION [None]
  - BLADDER SPASM [None]
